FAERS Safety Report 6316890-1 (Version None)
Quarter: 2009Q3

REPORT INFORMATION
  Report Type: 
  Country: None (occurrence: None)
  Receive Date: 20090820
  Receipt Date: 20090806
  Transmission Date: 20100115
  Serious: Yes (Other)
  Sender: FDA-Public Use
  Company Number: ES-MYLANLABS-2009S1013953

PATIENT
  Age: 64 Year
  Sex: Female

DRUGS (7)
  1. VALPROIC ACID [Suspect]
     Indication: SCHIZOPHRENIA, DISORGANISED TYPE
     Dosage: STARTING DOSE 300 MG/DAY AND INCREASING IN 2 WEEKS TO 1500 MG/DAY
  2. VALPROIC ACID [Suspect]
  3. CLOZAPINE [Concomitant]
     Indication: SCHIZOPHRENIA, DISORGANISED TYPE
  4. HALOPERIDOL [Concomitant]
     Indication: SCHIZOPHRENIA, DISORGANISED TYPE
  5. OLANZAPINE [Concomitant]
     Indication: SCHIZOPHRENIA, DISORGANISED TYPE
  6. BIPERIDEN HYDROCHLORIDE TAB [Concomitant]
  7. LEVOMEPROMAZINE [Concomitant]
     Dosage: 100MG AT NIGHT

REACTIONS (2)
  - EOSINOPHILIA [None]
  - PLEURAL EFFUSION [None]
